FAERS Safety Report 9038574 (Version 1)
Quarter: 2013Q1

REPORT INFORMATION
  Report Type: Spontaneous
  Country: JP (occurrence: JP)
  Receive Date: 20130129
  Receipt Date: 20130129
  Transmission Date: 20140127
  Serious: Yes (Other)
  Sender: FDA-Public Use
  Company Number: JP-MYLANLABS-2013S1001273

PATIENT
  Age: 23 Year
  Sex: Female

DRUGS (3)
  1. BLEOMYCIN [Suspect]
     Indication: OVARIAN GERM CELL ENDODERMAL SINUS TUMOUR STAGE III
     Dosage: 30MG ON DAYS 2, 9 AND 16
     Route: 065
  2. ETOPOSIDE [Suspect]
     Indication: OVARIAN GERM CELL ENDODERMAL SINUS TUMOUR STAGE III
     Dosage: 100 MG/M2 ON DAYS 1-5
     Route: 065
  3. CISPLATIN [Suspect]
     Indication: OVARIAN GERM CELL ENDODERMAL SINUS TUMOUR STAGE III
     Dosage: 20 MG/M2 ON DAYS 1-5
     Route: 065

REACTIONS (5)
  - Pulmonary fibrosis [Not Recovered/Not Resolved]
  - Tumour lysis syndrome [Unknown]
  - Cardiac failure congestive [Unknown]
  - Renal failure acute [Unknown]
  - Febrile neutropenia [Unknown]
